FAERS Safety Report 24573748 (Version 1)
Quarter: 2024Q4

REPORT INFORMATION
  Report Type: Spontaneous
  Country: US (occurrence: US)
  Receive Date: 20241103
  Receipt Date: 20241103
  Transmission Date: 20250115
  Serious: Yes (Death, Hospitalization, Other)
  Sender: APOTEX
  Company Number: US-APOTEX-2024AP017031

PATIENT
  Age: 75 Year
  Sex: Female

DRUGS (1)
  1. METFORMIN [Suspect]
     Active Substance: METFORMIN HYDROCHLORIDE
     Indication: Product used for unknown indication
     Dosage: UNK
     Route: 065

REACTIONS (11)
  - Acute kidney injury [Fatal]
  - Coma [Fatal]
  - Rhabdomyolysis [Fatal]
  - Depressed level of consciousness [Fatal]
  - Paralysis [Fatal]
  - Seizure [Fatal]
  - Metabolic acidosis [Fatal]
  - Anion gap abnormal [Fatal]
  - Hypertension [Fatal]
  - Tachycardia [Fatal]
  - Toxicity to various agents [Fatal]
